FAERS Safety Report 12563280 (Version 1)
Quarter: 2016Q3

REPORT INFORMATION
  Report Type: Spontaneous
  Country: FR (occurrence: FR)
  Receive Date: 20160715
  Receipt Date: 20160715
  Transmission Date: 20161109
  Serious: Yes (Life-Threatening, Hospitalization)
  Sender: FDA-Public Use
  Company Number: FR-TEVA-675426ISR

PATIENT
  Age: 61 Year
  Sex: Female

DRUGS (5)
  1. AMOXICILLINE [Suspect]
     Active Substance: AMOXICILLIN
     Indication: TOOTHACHE
     Dosage: 1 DOSAGE FORMS DAILY;
     Route: 048
     Dates: start: 20160517, end: 20160517
  2. CRESTOR [Concomitant]
     Active Substance: ROSUVASTATIN CALCIUM
     Indication: HYPERCHOLESTEROLAEMIA
  3. LEVOTHYROX [Concomitant]
     Active Substance: LEVOTHYROXINE
     Indication: HYPOTHYROIDISM
  4. AVLOCARDYL [Concomitant]
     Active Substance: PROPRANOLOL HYDROCHLORIDE
     Indication: HEADACHE
  5. SPASFON [Suspect]
     Active Substance: PHLOROGLUCINOL
     Indication: TOOTHACHE
     Dosage: 1 DOSAGE FORMS DAILY;
     Route: 048
     Dates: start: 20160517, end: 20160517

REACTIONS (2)
  - Fall [Recovered/Resolved]
  - Anaphylactic reaction [Recovered/Resolved]

NARRATIVE: CASE EVENT DATE: 20160517
